FAERS Safety Report 8948593 (Version 1)
Quarter: 2012Q4

REPORT INFORMATION
  Report Type: Spontaneous
  Country: FR (occurrence: None)
  Receive Date: 20121123
  Receipt Date: 20121123
  Transmission Date: 20130627
  Serious: Yes (Death)
  Sender: FDA-Public Use
  Company Number: DKLU1086439

PATIENT
  Age: 72 Year
  Sex: Female

DRUGS (10)
  1. ONFI [Suspect]
     Indication: PRODUCT USED FOR UNKNOWN INDICATION
     Route: 048
  2. MYOLASTAN [Suspect]
     Indication: PRODUCT USED FOR UNKNOWN INDICATION
     Dosage: 25 mg milligram(s), 1 in 1 d, oral
     Route: 048
     Dates: end: 19921016
  3. HAVLANE [Suspect]
     Indication: PRODUCT USED FOR UNKNOWN INDICATION
     Route: 048
  4. DI-ANTALVIC [Suspect]
     Indication: PRODUCT USED FOR UNKNOWN INDICATION
     Route: 048
  5. CORDARONE [Suspect]
     Indication: ARRHYTHMIA
     Dosage: 200 mg milligram(s), 1 in 1 d, oral
     Route: 048
  6. PROZAC [Suspect]
     Indication: DEPRESSION
     Route: 048
  7. LEXOMIL [Suspect]
     Indication: ANXIETY
     Route: 048
  8. MODOPAR [Suspect]
     Indication: PARKINSONISM
     Route: 048
  9. LISURIDE [Suspect]
     Indication: PARKINSONISM
     Route: 048
     Dates: start: 1992, end: 1992
  10. FENOFIBRATE [Suspect]
     Indication: PRODUCT USED FOR UNKNOWN INDICATION
     Route: 048
     Dates: start: 1992, end: 1992

REACTIONS (4)
  - Bradycardia [None]
  - Acute respiratory failure [None]
  - Right ventricular failure [None]
  - Toxicity to various agents [None]
